FAERS Safety Report 22304175 (Version 1)
Quarter: 2023Q2

REPORT INFORMATION
  Report Type: Spontaneous
  Country: IR (occurrence: IR)
  Receive Date: 20230510
  Receipt Date: 20230510
  Transmission Date: 20230721
  Serious: Yes (Other)
  Sender: FDA-Public Use
  Company Number: IR-SUN PHARMACEUTICAL INDUSTRIES LTD-2023R1-387151

PATIENT
  Age: 70 Day
  Sex: Female

DRUGS (1)
  1. NALIDIXIC ACID [Suspect]
     Active Substance: NALIDIXIC ACID
     Indication: Product used for unknown indication
     Dosage: UNK
     Route: 065

REACTIONS (4)
  - Idiopathic intracranial hypertension [Unknown]
  - Hypotonia [Unknown]
  - Delayed fontanelle closure [Unknown]
  - Ventricular enlargement [Unknown]
